FAERS Safety Report 11638081 (Version 3)
Quarter: 2015Q4

REPORT INFORMATION
  Report Type: Report from Study
  Country: IT (occurrence: IT)
  Receive Date: 20151016
  Receipt Date: 20151026
  Transmission Date: 20160304
  Serious: Yes (Other)
  Sender: FDA-Public Use
  Company Number: IT-TEVA-598092ACC

PATIENT
  Age: 46 Year
  Sex: Male

DRUGS (4)
  1. COPEGUS [Suspect]
     Active Substance: RIBAVIRIN
     Indication: CHRONIC HEPATITIS C
  2. RIBAVIRINA TEVA PHARMA BV - 200 MG COMPRESSA RIVESTITA CON FILM - TEVA [Suspect]
     Active Substance: RIBAVIRIN
     Indication: CHRONIC HEPATITIS C
     Dosage: 1200 MILLIGRAM DAILY; 1200 MG DAILY
     Dates: start: 20150610, end: 20150919
  3. VIEKIRAX - 12.5MG/75MG/50MG COMPRESSA RIVESTITA CON FILM - ABBVIE LTD [Suspect]
     Active Substance: OMBITASVIR\PARITAPREVIR\RITONAVIR
     Indication: CHRONIC HEPATITIS C
     Dosage: 2 DOSAGE FORMS DAILY; 2 DF DAILY
     Route: 048
     Dates: start: 20150610, end: 20150919
  4. EXVIERA - 250 MG COMPRESSA RIVESTITA CON FILM - ABBVIE LTD [Suspect]
     Active Substance: DASABUVIR
     Indication: CHRONIC HEPATITIS C
     Dosage: 2 DOSAGE FORMS DAILY; 2 DF DAILY
     Route: 048
     Dates: start: 20150610, end: 20150919

REACTIONS (3)
  - Hepatitis C RNA [Unknown]
  - Treatment noncompliance [Unknown]
  - Bankruptcy [Not Recovered/Not Resolved]

NARRATIVE: CASE EVENT DATE: 20150812
